FAERS Safety Report 8300597-5 (Version None)
Quarter: 2012Q2

REPORT INFORMATION
  Report Type: 
  Country: None (occurrence: None)
  Receive Date: 20120417
  Receipt Date: 20120410
  Transmission Date: 20120825
  Serious: Yes (Hospitalization, Other)
  Sender: FDA-Public Use
  Company Number: 2010AP002316

PATIENT
  Age: 32 Year
  Sex: Female

DRUGS (1)
  1. FLUTICASONE PROPIONATE [Suspect]
     Indication: EOSINOPHILIC OESOPHAGITIS
     Dosage: 220 UG;BID

REACTIONS (1)
  - HERPES OESOPHAGITIS [None]
